FAERS Safety Report 6339474-8 (Version None)
Quarter: 2009Q3

REPORT INFORMATION
  Report Type: 
  Country: None (occurrence: None)
  Receive Date: 20090827
  Receipt Date: 20090610
  Transmission Date: 20100115
  Serious: No
  Sender: FDA-Public Use
  Company Number: 001004

PATIENT
  Sex: Female

DRUGS (2)
  1. LACOSAMIDE [Suspect]
     Indication: CONVULSION
     Dosage: (100 MG BID ORAL)
     Route: 048
     Dates: start: 20090601
  2. LAMICTAL [Concomitant]

REACTIONS (1)
  - RASH GENERALISED [None]
